FAERS Safety Report 24530110 (Version 1)
Quarter: 2024Q4

REPORT INFORMATION
  Report Type: Spontaneous
  Country: US (occurrence: US)
  Receive Date: 20241021
  Receipt Date: 20241021
  Transmission Date: 20250115
  Serious: No
  Sender: LUNDBECK
  Company Number: US-LUNDBECK-DKLU4004738

PATIENT

DRUGS (6)
  1. SABRIL [Suspect]
     Active Substance: VIGABATRIN
     Indication: Tuberous sclerosis complex
     Dosage: 200 MILLIGRAM
     Route: 048
     Dates: start: 20240223
  2. SABRIL [Suspect]
     Active Substance: VIGABATRIN
     Indication: Infantile spasms
     Dosage: 250 MILLIGRAM
     Route: 048
     Dates: start: 20240223
  3. ALBUTEROL [Concomitant]
     Active Substance: ALBUTEROL
     Indication: Product used for unknown indication
     Dosage: NEB 1.25MG/3
  4. EVEROLIMUS [Concomitant]
     Active Substance: EVEROLIMUS
     Indication: Product used for unknown indication
  5. KEPPRA [Concomitant]
     Active Substance: LEVETIRACETAM
     Indication: Product used for unknown indication
  6. SULFATRIM PEDIATRIC [Concomitant]
     Indication: Product used for unknown indication
     Dosage: 200-40/5

REACTIONS (3)
  - Cough [Unknown]
  - Sneezing [Unknown]
  - Diarrhoea [Unknown]
